FAERS Safety Report 9473684 (Version 2)
Quarter: 2013Q3

REPORT INFORMATION
  Report Type: Spontaneous
  Country: US (occurrence: US)
  Receive Date: 20130823
  Receipt Date: 20130823
  Transmission Date: 20140515
  Serious: No
  Sender: FDA-Public Use
  Company Number: US-BRISTOL-MYERS SQUIBB COMPANY-16893489

PATIENT
  Age: 87 Year
  Sex: Female
  Weight: 42.18 kg

DRUGS (6)
  1. SPRYCEL [Suspect]
     Indication: LEUKAEMIA
     Dosage: STOPPED 20JUL12 RESTR 10AUG12
     Route: 048
     Dates: start: 20120713
  2. VICODIN [Concomitant]
  3. VITAMIN D [Concomitant]
  4. ZANTAC [Concomitant]
  5. HYDRALAZINE [Concomitant]
  6. METOPROLOL [Concomitant]

REACTIONS (1)
  - Blood pressure increased [Not Recovered/Not Resolved]
